FAERS Safety Report 18441967 (Version 2)
Quarter: 2021Q1

REPORT INFORMATION
  Report Type: Report from Study
  Country: CA (occurrence: CA)
  Receive Date: 20201029
  Receipt Date: 20210302
  Transmission Date: 20210419
  Serious: Yes (Death)
  Sender: FDA-Public Use
  Company Number: NVSC2020CA290894

PATIENT
  Age: 60 Year
  Sex: Female

DRUGS (1)
  1. KISQALI [Suspect]
     Active Substance: RIBOCICLIB
     Indication: BREAST CANCER METASTATIC
     Dosage: UNK
     Route: 048
     Dates: start: 20190911

REACTIONS (2)
  - Brain stem syndrome [Fatal]
  - Subdural hygroma [Fatal]

NARRATIVE: CASE EVENT DATE: 202005
